FAERS Safety Report 10655790 (Version 2)
Quarter: 2014Q4

REPORT INFORMATION
  Report Type: Spontaneous
  Country: US (occurrence: US)
  Receive Date: 20141216
  Receipt Date: 20141216
  Transmission Date: 20150529
  Serious: Yes (Death)
  Sender: FDA-Public Use
  Company Number: US-CELGENEUS-163-20785-14053533

PATIENT
  Age: 74 Year
  Sex: Female

DRUGS (1)
  1. THALOMID [Suspect]
     Active Substance: THALIDOMIDE
     Indication: MONOCLONAL GAMMOPATHY
     Dosage: 100 MILLIGRAM
     Route: 048
     Dates: start: 200811, end: 2014

REACTIONS (5)
  - Chronic kidney disease [Fatal]
  - Hypertension [Fatal]
  - Diabetes mellitus [Fatal]
  - Sepsis [Fatal]
  - Peripheral vascular disorder [Fatal]

NARRATIVE: CASE EVENT DATE: 201405
